FAERS Safety Report 16758938 (Version 2)
Quarter: 2019Q4

REPORT INFORMATION
  Report Type: Spontaneous
  Country: JP (occurrence: JP)
  Receive Date: 20190830
  Receipt Date: 20191016
  Transmission Date: 20200122
  Serious: Yes (Hospitalization)
  Sender: FDA-Public Use
  Company Number: JP-GLAXOSMITHKLINE-JP2019JPN156512

PATIENT
  Age: 91 Year
  Sex: Female

DRUGS (6)
  1. SERETIDE [Suspect]
     Active Substance: FLUTICASONE PROPIONATE\SALMETEROL XINAFOATE
     Indication: ASTHMA
     Dosage: 250 ?G, BID
     Route: 055
  2. AZOSEMIDE TABLET [Concomitant]
     Dosage: 60 MG, 1D
     Route: 048
     Dates: start: 20180223
  3. FEBURIC TABLETS [Concomitant]
     Active Substance: FEBUXOSTAT
     Dosage: 20 MG, 1D
     Route: 048
     Dates: start: 20161220
  4. AMITIZA CAPSULE [Concomitant]
     Dosage: 48 ?G, 1D
     Route: 048
     Dates: start: 20180223
  5. AMLODIPINE OD TABLETS [Concomitant]
     Active Substance: AMLODIPINE BESYLATE
     Dosage: 5 MG, 1D
     Route: 048
     Dates: start: 20180223
  6. LIXIANA OD TABLETS [Concomitant]
     Active Substance: EDOXABAN TOSYLATE
     Dosage: 30 MG, 1D
     Route: 048
     Dates: start: 20190813

REACTIONS (2)
  - Therapeutic product effect incomplete [Unknown]
  - Asthma [Recovering/Resolving]

NARRATIVE: CASE EVENT DATE: 201907
